FAERS Safety Report 7654008-3 (Version None)
Quarter: 2011Q3

REPORT INFORMATION
  Report Type: 
  Country: None (occurrence: None)
  Receive Date: 20110802
  Receipt Date: 20110802
  Transmission Date: 20111222
  Serious: Yes (Other)
  Sender: FDA-Public Use
  Company Number: None

PATIENT
  Age: 41 Year
  Sex: Female
  Weight: 117.9 kg

DRUGS (1)
  1. REMICADE [Suspect]
     Indication: BEHCET'S SYNDROME
     Dosage: 600 MG ONCE IV
     Route: 042
     Dates: start: 20110727, end: 20110727

REACTIONS (2)
  - INFUSION RELATED REACTION [None]
  - DRUG HYPERSENSITIVITY [None]
